FAERS Safety Report 5955704-6 (Version None)
Quarter: 2008Q4

REPORT INFORMATION
  Report Type: 
  Country: None (occurrence: None)
  Receive Date: 20081117
  Receipt Date: 20081105
  Transmission Date: 20090506
  Serious: Yes (Other)
  Sender: FDA-Public Use
  Company Number: US-PFIZER INC-2008071269

PATIENT
  Sex: Male

DRUGS (6)
  1. PROCARDIA XL [Suspect]
     Indication: HYPERTENSION
     Route: 048
     Dates: start: 20080101, end: 20080801
  2. PROCARDIA XL [Suspect]
  3. TOPROL-XL [Concomitant]
     Dosage: DAILY DOSE:12.5MG
     Route: 048
  4. ALTACE [Concomitant]
     Route: 048
  5. ACETYLSALICYLIC ACID SRT [Concomitant]
     Indication: VASCULAR GRAFT
     Route: 048
  6. VYTORIN [Concomitant]
     Indication: BLOOD CHOLESTEROL INCREASED
     Route: 048

REACTIONS (2)
  - ARTHRITIS [None]
  - MUSCLE SPASMS [None]
